FAERS Safety Report 4310582-6 (Version None)
Quarter: 2004Q1

REPORT INFORMATION
  Report Type: 
  Country: None (occurrence: None)
  Receive Date: 20040303
  Receipt Date: 20040226
  Transmission Date: 20041129
  Serious: Yes (Hospitalization)
  Sender: FDA-Public Use
  Company Number: FR-BRISTOL-MYERS SQUIBB COMPANY-12518916

PATIENT
  Age: 85 Year
  Sex: Male

DRUGS (1)
  1. APROVEL [Suspect]
     Indication: HYPERTENSION
     Route: 048

REACTIONS (2)
  - ORTHOSTATIC HYPOTENSION [None]
  - PULMONARY HYPERTENSION [None]
